FAERS Safety Report 17008658 (Version 2)
Quarter: 2019Q4

REPORT INFORMATION
  Report Type: Report from Study
  Country: CO (occurrence: CO)
  Receive Date: 20191108
  Receipt Date: 20191125
  Transmission Date: 20200122
  Serious: Yes (Hospitalization, Other)
  Sender: FDA-Public Use
  Company Number: CO-ASTELLAS-2018US045582

PATIENT
  Age: 7 Month
  Sex: Male
  Weight: 13 kg

DRUGS (7)
  1. PREDNISOLONE. [Concomitant]
     Active Substance: PREDNISOLONE
     Route: 048
  2. MYCOPHENOLATE [Concomitant]
     Active Substance: MYCOPHENOLIC ACID
     Indication: LIVER TRANSPLANT
     Route: 048
     Dates: start: 20180813
  3. MYCOPHENOLATE [Concomitant]
     Active Substance: MYCOPHENOLIC ACID
     Dosage: 4 CC, EVERY 12 HOURS
     Route: 048
  4. PREDNISOLONE. [Concomitant]
     Active Substance: PREDNISOLONE
     Route: 048
  5. TACROLIMUS. [Suspect]
     Active Substance: TACROLIMUS
     Indication: LIVER TRANSPLANT
     Route: 048
     Dates: start: 20180813, end: 201812
  6. TACROLIMUS. [Suspect]
     Active Substance: TACROLIMUS
     Dosage: 2 MG IN MORNING AND 1 MG IN NIGHT (3 CAPSULES OF 1MG)
     Route: 048
     Dates: start: 201812
  7. PREDNISOLONE. [Concomitant]
     Active Substance: PREDNISOLONE
     Indication: LIVER TRANSPLANT
     Route: 048

REACTIONS (5)
  - Liver transplant rejection [Unknown]
  - Immunosuppressant drug level decreased [Unknown]
  - Expired product administered [Unknown]
  - Wrong dosage formulation [Unknown]
  - Influenza [Recovering/Resolving]

NARRATIVE: CASE EVENT DATE: 20180813
